FAERS Safety Report 11253652 (Version 4)
Quarter: 2019Q4

REPORT INFORMATION
  Report Type: Spontaneous
  Country: CA (occurrence: CA)
  Receive Date: 20150709
  Receipt Date: 20191126
  Transmission Date: 20200122
  Serious: Yes (Death, Other)
  Sender: FDA-Public Use
  Company Number: CA-MALLINCKRODT-T201503302

PATIENT
  Age: 64 Year
  Sex: Male

DRUGS (10)
  1. HYDROMORPHONE HYDROCHLORIDE. [Suspect]
     Active Substance: HYDROMORPHONE HYDROCHLORIDE
     Indication: PELVIC PAIN
     Dosage: 30 MG, QD
     Route: 051
     Dates: start: 2013
  2. DEXAMETHASONE. [Suspect]
     Active Substance: DEXAMETHASONE
     Indication: PELVIC PAIN
     Dosage: 16 MILLIGRAM, QD
     Route: 048
     Dates: start: 2013
  3. DEXAMETHASONE. [Suspect]
     Active Substance: DEXAMETHASONE
     Indication: BACK PAIN
     Dosage: 0.75 MILLIGRAM, QD (UP TO 16 MG/DAY)
     Route: 048
     Dates: start: 2013
  4. METHADOSE [Suspect]
     Active Substance: METHADONE HYDROCHLORIDE
     Indication: BACK PAIN
  5. HYDROMORPHONE HYDROCHLORIDE. [Suspect]
     Active Substance: HYDROMORPHONE HYDROCHLORIDE
     Indication: BACK PAIN
     Dosage: UNK
     Route: 037
  6. ACETAMINOPHEN. [Suspect]
     Active Substance: ACETAMINOPHEN
     Indication: PELVIC PAIN
     Dosage: 3 G, QD
     Route: 065
     Dates: start: 2013
  7. PREGABALIN. [Suspect]
     Active Substance: PREGABALIN
     Indication: PELVIC PAIN
     Dosage: 150 MILLIGRAM, QD
     Route: 065
  8. PREGABALIN. [Suspect]
     Active Substance: PREGABALIN
     Indication: BACK PAIN
  9. METHADOSE [Suspect]
     Active Substance: METHADONE HYDROCHLORIDE
     Indication: PELVIC PAIN
     Dosage: 24 MILLIGRAM, QD
     Route: 048
     Dates: start: 2013
  10. ACETAMINOPHEN. [Suspect]
     Active Substance: ACETAMINOPHEN
     Indication: BACK PAIN

REACTIONS (5)
  - Neoplasm malignant [Fatal]
  - Drug interaction [Recovered/Resolved]
  - Hallucination [Recovered/Resolved]
  - Delirium [Recovered/Resolved]
  - Drug ineffective [Recovered/Resolved]
